FAERS Safety Report 9898401 (Version 1)
Quarter: 2014Q1

REPORT INFORMATION
  Report Type: Spontaneous
  Country: US (occurrence: US)
  Receive Date: 20140214
  Receipt Date: 20140214
  Transmission Date: 20141002
  Serious: Yes (Other)
  Sender: FDA-Public Use
  Company Number: US-PURDUE-USA-2014-0111184

PATIENT
  Sex: Female

DRUGS (2)
  1. BUTRANS [Suspect]
     Indication: ARTHRALGIA
     Dosage: 20 MCG/HR, WEEKLY
     Route: 062
     Dates: start: 20140130
  2. BUTRANS [Suspect]
     Dosage: 10 MCG/HR, WEEKLY
     Route: 062
     Dates: start: 20140203

REACTIONS (4)
  - Hip arthroplasty [Unknown]
  - Burning sensation [Unknown]
  - Feeling abnormal [Unknown]
  - Inadequate analgesia [Unknown]
